FAERS Safety Report 10351787 (Version 2)
Quarter: 2014Q3

REPORT INFORMATION
  Report Type: Report from Study
  Country: DE (occurrence: DE)
  Receive Date: 20140730
  Receipt Date: 20140806
  Transmission Date: 20150326
  Serious: Yes (Hospitalization)
  Sender: FDA-Public Use
  Company Number: DE-INCYTE CORPORATION-2014IN002072

PATIENT
  Sex: Female
  Weight: 53 kg

DRUGS (15)
  1. INCB018424 [Suspect]
     Active Substance: RUXOLITINIB
     Dosage: 5 MG, BID
     Route: 048
     Dates: start: 20140430, end: 20140501
  2. IBUPROFEN. [Concomitant]
     Active Substance: IBUPROFEN
     Indication: ARTHRALGIA
     Dosage: 1200 MG, PERDAY
     Dates: start: 20140108, end: 20140203
  3. NOVALGIN                                /SCH/ [Concomitant]
     Indication: PAIN IN EXTREMITY
     Dates: start: 20140512
  4. INCB018424 [Suspect]
     Active Substance: RUXOLITINIB
     Dosage: 2 DF 5 MG + 2 DF 20 MG PER DAY
     Route: 048
     Dates: start: 20140325, end: 20140421
  5. INCB018424 [Suspect]
     Active Substance: RUXOLITINIB
     Dosage: 20 MG, BID
     Route: 048
     Dates: start: 20140422, end: 20140424
  6. ASPIRIN. [Concomitant]
     Active Substance: ASPIRIN
     Dosage: 100 MG, PERDAY
     Dates: end: 20140401
  7. INCB018424 [Suspect]
     Active Substance: RUXOLITINIB
     Indication: MYELOFIBROSIS
     Dosage: 15 MG, BID
     Route: 048
     Dates: start: 20131021
  8. INCB018424 [Suspect]
     Active Substance: RUXOLITINIB
     Dosage: 15 MG, BID
     Route: 048
     Dates: start: 20140425, end: 20140427
  9. HYDREA [Concomitant]
     Active Substance: HYDROXYUREA
     Indication: MYELOFIBROSIS
     Dosage: 1000 MG,PERDAY
     Dates: start: 20140502
  10. DICLOFENAC [Concomitant]
     Active Substance: DICLOFENAC
     Indication: ARTHRALGIA
     Dates: start: 20131218
  11. INCB018424 [Suspect]
     Active Substance: RUXOLITINIB
     Dosage: 20 MG, UNK
     Route: 048
     Dates: start: 20131127, end: 20140324
  12. INCB018424 [Suspect]
     Active Substance: RUXOLITINIB
     Dosage: 5 MG, UNK
     Route: 048
     Dates: start: 20140428, end: 20140429
  13. INCB018424 [Suspect]
     Active Substance: RUXOLITINIB
     Dosage: 20 MG, BID
     Route: 048
     Dates: start: 20140609
  14. CLARITHROMYCIN. [Concomitant]
     Active Substance: CLARITHROMYCIN
     Indication: BRONCHITIS
     Dosage: 1000 MG, PERDAY
     Dates: start: 20131105, end: 20131115
  15. PANTOZOL [Concomitant]
     Active Substance: PANTOPRAZOLE SODIUM
     Indication: PROPHYLAXIS
     Dosage: 40 MG, PERDAY
     Dates: start: 20140430

REACTIONS (2)
  - Fall [Not Recovered/Not Resolved]
  - Humerus fracture [Not Recovered/Not Resolved]

NARRATIVE: CASE EVENT DATE: 20140502
